FAERS Safety Report 13263123 (Version 5)
Quarter: 2018Q3

REPORT INFORMATION
  Report Type: Spontaneous
  Country: US (occurrence: US)
  Receive Date: 20170223
  Receipt Date: 20180922
  Transmission Date: 20181010
  Serious: No
  Sender: FDA-Public Use
  Company Number: US-BRISTOL-MYERS SQUIBB COMPANY-BMS-2017-015049

PATIENT
  Sex: Male
  Weight: 158.7 kg

DRUGS (1)
  1. YERVOY [Suspect]
     Active Substance: IPILIMUMAB
     Indication: MALIGNANT MELANOMA
     Dosage: 1140 MG (10 MG/KG), EVERY 12 WEEKS
     Route: 042
     Dates: start: 20170208, end: 20180124

REACTIONS (2)
  - Weight decreased [Unknown]
  - Prescribed overdose [Unknown]
